FAERS Safety Report 10034887 (Version 4)
Quarter: 2014Q3

REPORT INFORMATION
  Report Type: Spontaneous
  Country: FR (occurrence: None)
  Receive Date: 20140321
  Receipt Date: 20140924
  Transmission Date: 20150326
  Serious: Yes (Life-Threatening, Other)
  Sender: FDA-Public Use
  Company Number: KAD201403-000347

PATIENT
  Age: 49 Year
  Sex: Male
  Weight: 98.4 kg

DRUGS (3)
  1. AVLOCARDYL (PROPRANOLOL) (PROPRANOLOL) [Concomitant]
  2. RIBAVIRIN. [Suspect]
     Active Substance: RIBAVIRIN
     Dosage: 3 IN AM AND 3 IN PM, ORAL
     Route: 048
     Dates: start: 20130531, end: 20140307
  3. GS-7977 [Suspect]
     Active Substance: SOFOSBUVIR
     Route: 048
     Dates: start: 20130531, end: 20140307

REACTIONS (7)
  - Asthenia [None]
  - Gamma-glutamyltransferase increased [None]
  - Jaundice [None]
  - Alanine aminotransferase increased [None]
  - Aspartate aminotransferase increased [None]
  - Blood alkaline phosphatase increased [None]
  - Blood bilirubin increased [None]

NARRATIVE: CASE EVENT DATE: 20140304
